FAERS Safety Report 10747148 (Version 1)
Quarter: 2015Q1

REPORT INFORMATION
  Report Type: Spontaneous
  Country: CA (occurrence: CA)
  Receive Date: 20150129
  Receipt Date: 20150129
  Transmission Date: 20150721
  Serious: Yes (Other)
  Sender: FDA-Public Use
  Company Number: CA-ROCHE-1525719

PATIENT
  Age: 56 Year
  Sex: Female
  Weight: 104.42 kg

DRUGS (11)
  1. OMNARIS [Concomitant]
     Active Substance: CICLESONIDE
     Route: 065
  2. SERTRALINE [Concomitant]
     Active Substance: SERTRALINE HYDROCHLORIDE
  3. FISH OIL [Concomitant]
     Active Substance: FISH OIL
  4. FERAMAX [Concomitant]
     Active Substance: IRON\POLYSACCHARIDES
  5. CELLCEPT [Suspect]
     Active Substance: MYCOPHENOLATE MOFETIL\MYCOPHENOLATE MOFETIL HYDROCHLORIDE
     Indication: PRODUCT USED FOR UNKNOWN INDICATION
     Route: 065
  6. PREDNISONE. [Suspect]
     Active Substance: PREDNISONE
     Indication: PRODUCT USED FOR UNKNOWN INDICATION
     Dosage: START DATE- 23/APR/2013
     Route: 065
  7. TACROLIMUS. [Concomitant]
     Active Substance: TACROLIMUS
     Dosage: 0.1 %
     Route: 065
  8. MORPHINE [Concomitant]
     Active Substance: MORPHINE
  9. CLOBETASOL [Concomitant]
     Active Substance: CLOBETASOL
  10. VITAMIN C [Concomitant]
     Active Substance: ASCORBIC ACID
  11. ACTONEL [Concomitant]
     Active Substance: RISEDRONATE SODIUM
     Dosage: WEEKLY
     Route: 065

REACTIONS (5)
  - Blood cholesterol increased [Unknown]
  - Hypertension [Unknown]
  - Weight increased [Unknown]
  - Pemphigus [Not Recovered/Not Resolved]
  - Diabetes mellitus [Unknown]

NARRATIVE: CASE EVENT DATE: 20130109
